FAERS Safety Report 6599704-4 (Version None)
Quarter: 2010Q1

REPORT INFORMATION
  Report Type: 
  Country: None (occurrence: None)
  Receive Date: 20100216
  Receipt Date: 20100208
  Transmission Date: 20100710
  Serious: Yes (Other)
  Sender: FDA-Public Use
  Company Number: 2010SP007924

PATIENT
  Age: 41 Year
  Sex: Female

DRUGS (5)
  1. MIRTAZAPINE [Suspect]
     Indication: DEPRESSION
     Dosage: 15 MG; QD; PO; 30 MG; QD; PO
     Route: 048
     Dates: start: 20091104, end: 20091112
  2. MIRTAZAPINE [Suspect]
     Indication: DEPRESSION
     Dosage: 15 MG; QD; PO; 30 MG; QD; PO
     Route: 048
     Dates: start: 20091113
  3. TOLEDOMIN (MILNACIPRAN HYDROCHLORIDE) [Suspect]
     Indication: DRUG USE FOR UNKNOWN INDICATION
     Dosage: 25 MG; QD; PO; 50 MG; QD; PO
     Route: 048
     Dates: end: 20091210
  4. TOLEDOMIN (MILNACIPRAN HYDROCHLORIDE) [Suspect]
     Indication: DRUG USE FOR UNKNOWN INDICATION
     Dosage: 25 MG; QD; PO; 50 MG; QD; PO
     Route: 048
     Dates: start: 20091211
  5. ETHYL LOFLAZEPATE [Concomitant]

REACTIONS (5)
  - ANXIETY [None]
  - ARRHYTHMIA [None]
  - FATIGUE [None]
  - SENSATION OF HEAVINESS [None]
  - TREMOR [None]
